FAERS Safety Report 22659265 (Version 1)
Quarter: 2023Q2

REPORT INFORMATION
  Report Type: Spontaneous
  Country: US (occurrence: US)
  Receive Date: 20230630
  Receipt Date: 20230630
  Transmission Date: 20230722
  Serious: Yes (Other)
  Sender: FDA-Public Use
  Company Number: US-GRUNENTHAL-2023-102654

PATIENT
  Sex: Female

DRUGS (13)
  1. OXYCODONE HYDROCHLORIDE [Suspect]
     Active Substance: OXYCODONE HYDROCHLORIDE
     Indication: Arthralgia
     Dosage: ACQUIRED SEVERAL HUNDRED OXYCODONE FROM A DECEASED FAMILY MEMBER. WHEN HER TRAMADOL SUPPLY WAS LOW,
  2. OXYCODONE HYDROCHLORIDE [Suspect]
     Active Substance: OXYCODONE HYDROCHLORIDE
     Indication: Musculoskeletal chest pain
  3. TRAMADOL [Suspect]
     Active Substance: TRAMADOL
     Indication: Arthralgia
     Dosage: DOSAGE OF TRAMADOL WAS FURTHER INCREASED TO TWO 50 MG TABLETS FOUR TIMES DAILY, WRITTEN FOR 150-180
     Dates: start: 2017
  4. TRAMADOL [Suspect]
     Active Substance: TRAMADOL
     Indication: Musculoskeletal chest pain
     Dosage: ADDITIONAL TRAMADOL ?OFF THE STREET? FOR SEVERAL YEARS, DESCRIBED TAKING 20-25 TABLETS OF TRAMADOL 5
  5. TRAMADOL [Suspect]
     Active Substance: TRAMADOL
     Dosage: PRESCRIBED 50 MG TRAMADOL TABLETS WITH INSTRUCTIONS TO TAKE 150 MG (THREE TABLETS) FIVE TIMES PER DA
     Dates: start: 2021, end: 2021
  6. TRAMADOL [Suspect]
     Active Substance: TRAMADOL
     Dosage: INSTRUCTED TO DECREASE DAILY DOSE FURTHER BY TAKING TRAMADOL 150 MG (THREE 50 MG TABLETS) FOUR TIMES
     Dates: start: 2021, end: 2021
  7. TRAMADOL [Suspect]
     Active Substance: TRAMADOL
     Dosage: 50-100 MG, 180 TABLETS TO TAKE FOUR TIMES DAILY
  8. TRAMADOL [Suspect]
     Active Substance: TRAMADOL
     Dosage: TAPERED FROM 12 TABLETS OF 50 MG TRAMADOL PER DAY TO SIX TABLETS OF 50 MG TRAMADOL PER DAY.
     Dates: start: 2021, end: 2021
  9. TRAMADOL [Suspect]
     Active Substance: TRAMADOL
     Dosage: ADDITIONAL TRAMADOL ?OFF THE STREET? FOR SEVERAL YEARS, DESCRIBED TAKING 20-25 TABLETS OF TRAMADOL 5
  10. TRAMADOL [Suspect]
     Active Substance: TRAMADOL
     Dosage: TRAMADOL 50 MG TABLETS IN 2011 DOSED THREE TIMES DAILY
     Dates: start: 2011
  11. TRAMADOL [Suspect]
     Active Substance: TRAMADOL
     Dosage: SLOWLY ESCALATED THE DOSE TO FOUR TIMES DAILY, PRESCRIBING REFILLS RANGING FROM 90 TO 120 TABLETS
  12. GABAPENTIN [Concomitant]
     Active Substance: GABAPENTIN
     Indication: Musculoskeletal chest pain
     Dosage: INTERMITTENT USE
  13. CYCLOBENZAPRINE [Concomitant]
     Active Substance: CYCLOBENZAPRINE
     Indication: Musculoskeletal chest pain
     Dosage: INTERMITTENT USE

REACTIONS (10)
  - Electric shock sensation [Recovering/Resolving]
  - Analgesic drug level increased [Unknown]
  - Drug dependence [Recovered/Resolved]
  - Discomfort [Recovering/Resolving]
  - Drug use disorder [Recovered/Resolved]
  - Drug withdrawal syndrome [Recovering/Resolving]
  - Disturbance in attention [Recovering/Resolving]
  - Agitation [Recovering/Resolving]
  - Anxiety [Recovering/Resolving]
  - Intentional product misuse [Recovered/Resolved]
